FAERS Safety Report 19100589 (Version 4)
Quarter: 2024Q2

REPORT INFORMATION
  Report Type: Spontaneous
  Country: FR (occurrence: FR)
  Receive Date: 20210407
  Receipt Date: 20240508
  Transmission Date: 20240716
  Serious: Yes (Other)
  Sender: FDA-Public Use
  Company Number: FR-CELLTRION HEALTHCARE HUNGARY KFT-2021FR003470

PATIENT
  Age: 39 Month
  Sex: Female

DRUGS (21)
  1. REMICADE [Suspect]
     Active Substance: INFLIXIMAB
     Indication: Graft versus host disease in gastrointestinal tract
     Dosage: 75 MG/ 4 WEEKS
  2. REMICADE [Suspect]
     Active Substance: INFLIXIMAB
     Indication: Still^s disease
     Dosage: FOR GRADE III GASTROINTESTINAL GVHD
  3. TOCILIZUMAB [Suspect]
     Active Substance: TOCILIZUMAB
     Indication: Still^s disease
     Route: 065
  4. PREDNISOLONE [Suspect]
     Active Substance: PREDNISOLONE
     Indication: Still^s disease
     Dosage: 1 MG/KG PER DAY, TAPERED
     Route: 065
  5. PREDNISOLONE [Suspect]
     Active Substance: PREDNISOLONE
     Dosage: 2 MG/KG PER DAY
     Route: 065
  6. METHOTREXATE [Suspect]
     Active Substance: METHOTREXATE
     Indication: Still^s disease
     Dosage: 5 MG/WEEK
     Route: 065
  7. INDOMETHACIN [Suspect]
     Active Substance: INDOMETHACIN
     Indication: Still^s disease
     Dosage: 25 MG/M2, QD
     Route: 065
  8. INDOMETHACIN [Suspect]
     Active Substance: INDOMETHACIN
     Dosage: UNK
  9. FLUDARABINE [Suspect]
     Active Substance: FLUDARABINE PHOSPHATE
     Indication: Still^s disease
     Dosage: 160 MG/M2
     Route: 065
  10. THALIDOMIDE [Suspect]
     Active Substance: THALIDOMIDE
     Indication: Still^s disease
     Dosage: 50 MG/DAY
     Route: 065
  11. ANAKINRA [Suspect]
     Active Substance: ANAKINRA
     Indication: Still^s disease
     Route: 065
  12. METHYLPREDNISOLONE [Suspect]
     Active Substance: METHYLPREDNISOLONE
     Indication: Still^s disease
     Route: 065
  13. CANAKINUMAB [Suspect]
     Active Substance: CANAKINUMAB
     Indication: Still^s disease
     Route: 065
  14. ALEMTUZUMAB [Suspect]
     Active Substance: ALEMTUZUMAB
     Indication: Still^s disease
     Dosage: 0.5 MG/KG
     Route: 065
  15. BUSULFAN [Suspect]
     Active Substance: BUSULFAN
     Indication: Still^s disease
     Dosage: AUC OF 25,638 MICROM/MIN
     Route: 065
  16. ADALIMUMAB [Suspect]
     Active Substance: ADALIMUMAB\ISOPROPYL ALCOHOL
     Indication: Still^s disease
     Route: 065
  17. ADALIMUMAB [Suspect]
     Active Substance: ADALIMUMAB\ISOPROPYL ALCOHOL
     Route: 065
  18. RITUXIMAB [Suspect]
     Active Substance: RITUXIMAB
     Indication: Still^s disease
     Dosage: 375 MG/M2
     Route: 065
  19. CYCLOPHOSPHAMIDE [Concomitant]
     Active Substance: CYCLOPHOSPHAMIDE
     Indication: Prophylaxis against graft versus host disease
     Dosage: 50 MG/KG DAY 3 AND 4
     Route: 065
  20. CYCLOSPORINE [Concomitant]
     Active Substance: CYCLOSPORINE
     Indication: Prophylaxis against graft versus host disease
     Dosage: ON DAY 5
  21. MYCOPHENOLATE MOFETIL [Concomitant]
     Active Substance: MYCOPHENOLATE MOFETIL
     Indication: Prophylaxis against graft versus host disease
     Dosage: ON DAY 5

REACTIONS (33)
  - Hypothyroidism [Unknown]
  - Growth retardation [Recovering/Resolving]
  - Obliterative bronchiolitis [Recovered/Resolved]
  - Autoimmune thyroiditis [Unknown]
  - Acute graft versus host disease in skin [Recovering/Resolving]
  - Actinomycotic sepsis [Unknown]
  - Clostridium difficile colitis [Recovered/Resolved]
  - Immune thrombocytopenia [Recovered/Resolved]
  - Thrombocytopenia [Unknown]
  - Herpes zoster infection neurological [Unknown]
  - Hepatic cytolysis [Unknown]
  - Cellulitis staphylococcal [Unknown]
  - Graft versus host disease in gastrointestinal tract [Recovered/Resolved]
  - Secondary adrenocortical insufficiency [Unknown]
  - Osteopenia [Unknown]
  - Vitiligo [Unknown]
  - Cushingoid [Unknown]
  - Congenital aplasia [Unknown]
  - Focal nodular hyperplasia [Unknown]
  - C-reactive protein increased [Unknown]
  - Joint effusion [Recovered/Resolved]
  - Arthritis [Unknown]
  - Inflammation [Unknown]
  - Lung disorder [Recovered/Resolved]
  - Steroid dependence [Unknown]
  - Red blood cell sedimentation rate increased [Unknown]
  - Herpes zoster [Unknown]
  - Hypertension [Unknown]
  - Arthralgia [Unknown]
  - Condition aggravated [Unknown]
  - Toxicity to various agents [Unknown]
  - Drug ineffective for unapproved indication [Unknown]
  - Off label use [Unknown]
